FAERS Safety Report 24747172 (Version 1)
Quarter: 2024Q4

REPORT INFORMATION
  Report Type: Spontaneous
  Country: CA (occurrence: CA)
  Receive Date: 20241218
  Receipt Date: 20241218
  Transmission Date: 20250115
  Serious: Yes (Other)
  Sender: ROCHE
  Company Number: CA-ROCHE-10000154003

PATIENT
  Age: 74 Year
  Sex: Female
  Weight: 87 kg

DRUGS (1)
  1. ACTEMRA [Suspect]
     Active Substance: TOCILIZUMAB
     Indication: Rheumatoid arthritis
     Route: 042

REACTIONS (5)
  - Fall [Unknown]
  - Head injury [Unknown]
  - Concussion [Unknown]
  - Contusion [Unknown]
  - Periorbital haemorrhage [Unknown]
